FAERS Safety Report 25873533 (Version 1)
Quarter: 2025Q4

REPORT INFORMATION
  Report Type: Spontaneous
  Country: US (occurrence: None)
  Receive Date: 20251002
  Receipt Date: 20251002
  Transmission Date: 20260118
  Serious: Yes (unspecified)
  Sender: FDA-CTU
  Company Number: None

PATIENT
  Age: 87 Year
  Sex: Male
  Weight: 85.5 kg

DRUGS (11)
  1. ONGENTYS [Suspect]
     Active Substance: OPICAPONE
     Indication: Parkinson^s disease
     Dosage: OTHER QUANTITY : 1 CAPSULE(S);?FREQUENCY : AT BEDTIME;?
     Route: 048
     Dates: start: 20250826, end: 20250914
  2. ENTACAPONE [Suspect]
     Active Substance: ENTACAPONE
  3. RYTARY [Concomitant]
     Active Substance: CARBIDOPA\LEVODOPA
  4. ENTACAPONE [Concomitant]
     Active Substance: ENTACAPONE
  5. ELIQUIS [Concomitant]
     Active Substance: APIXABAN
  6. LYRICA [Concomitant]
     Active Substance: PREGABALIN
  7. LINZESS [Concomitant]
     Active Substance: LINACLOTIDE
  8. PROTONIX [Concomitant]
     Active Substance: PANTOPRAZOLE SODIUM
  9. Men^s Centrum Silver [Concomitant]
  10. RANOLAZINE [Concomitant]
     Active Substance: RANOLAZINE
  11. MINERALS\VITAMINS [Concomitant]
     Active Substance: MINERALS\VITAMINS

REACTIONS (3)
  - Dysphagia [None]
  - Dry eye [None]
  - Blood pressure increased [None]

NARRATIVE: CASE EVENT DATE: 20250826
